FAERS Safety Report 12109883 (Version 2)
Quarter: 2018Q4

REPORT INFORMATION
  Report Type: Spontaneous
  Country: US (occurrence: US)
  Receive Date: 20160224
  Receipt Date: 20181029
  Transmission Date: 20190204
  Serious: No
  Sender: FDA-Public Use
  Company Number: US-PFIZER INC-2016081798

PATIENT
  Age: 67 Year
  Sex: Male

DRUGS (11)
  1. LYRICA [Suspect]
     Active Substance: PREGABALIN
     Indication: LUMBOSACRAL RADICULOPATHY
     Dosage: 100 MG, TWICE DAILY
     Route: 048
     Dates: start: 20150914
  2. GLIPIZIDE. [Concomitant]
     Active Substance: GLIPIZIDE
     Dosage: 5 MG, TWICE DAILY (BEFORE MEALS)
     Route: 048
     Dates: start: 20150904
  3. OMEPRAZOLE. [Concomitant]
     Active Substance: OMEPRAZOLE
     Dosage: 20 MG, ONCE DAILY (30 MINUTES TO 1 HOUR BEFORE A MEAL)
     Route: 048
     Dates: start: 20150813
  4. LYRICA [Suspect]
     Active Substance: PREGABALIN
     Indication: PAIN
     Dosage: 200 MG, ONCE DAILY
     Route: 048
  5. ASPIRIN. [Concomitant]
     Active Substance: ASPIRIN
     Dosage: 81 MG, ONCE DAILY
     Route: 050
     Dates: start: 20150813
  6. FERROUS SULFATE. [Concomitant]
     Active Substance: FERROUS SULFATE
     Dosage: 325 MG (65 MG IRON), THRICE DAILY
     Route: 048
     Dates: start: 20150814
  7. PRAVASTATIN. [Concomitant]
     Active Substance: PRAVASTATIN
     Dosage: 20 MG, ONCE DAILY
     Route: 048
     Dates: start: 20150904
  8. METOPROLOL TARTRATE. [Concomitant]
     Active Substance: METOPROLOL TARTRATE
     Dosage: 50 MG, ONCE DAILY (WITH MEALS)
     Route: 048
     Dates: start: 20150914
  9. ALLOPURINOL. [Concomitant]
     Active Substance: ALLOPURINOL
     Dosage: 300 MG, ONCE DAILY
     Route: 048
     Dates: start: 20150914
  10. GABAPENTIN. [Concomitant]
     Active Substance: GABAPENTIN
     Dosage: 100 MG, TWICE DAILY (EVERY 12 HOURS)
     Route: 048
     Dates: start: 20150813
  11. RAPAFLO [Concomitant]
     Active Substance: SILODOSIN
     Dosage: 8 MG, ONCE DAILY (WITH A MEAL)
     Route: 048
     Dates: start: 20150904

REACTIONS (3)
  - Product use issue [Unknown]
  - Back pain [Unknown]
  - Arthralgia [Unknown]
